FAERS Safety Report 21093922 (Version 2)
Quarter: 2022Q3

REPORT INFORMATION
  Report Type: Spontaneous
  Country: CA (occurrence: CA)
  Receive Date: 20220718
  Receipt Date: 20220801
  Transmission Date: 20221027
  Serious: Yes (Other)
  Sender: FDA-Public Use
  Company Number: CA-NOVARTISPH-NVSC2022CA161564

PATIENT
  Sex: Female

DRUGS (1)
  1. MAXIDEX [Suspect]
     Active Substance: DEXAMETHASONE
     Indication: Eye inflammation
     Dosage: 1 DRP, TID
     Route: 065

REACTIONS (2)
  - Blindness [Unknown]
  - Drug ineffective [Unknown]
